FAERS Safety Report 25684450 (Version 4)
Quarter: 2025Q3

REPORT INFORMATION
  Report Type: Spontaneous
  Country: US (occurrence: US)
  Receive Date: 20250815
  Receipt Date: 20250910
  Transmission Date: 20251021
  Serious: Yes (Hospitalization, Other)
  Sender: LIFE MOLECULAR IMAGING LTD
  Company Number: US-Life Molecular Imaging Ltd-2182554

PATIENT
  Age: 78 Year
  Sex: Male

DRUGS (12)
  1. NEURACEQ [Suspect]
     Active Substance: FLORBETABEN F-18
     Indication: Dementia Alzheimer^s type
     Dates: start: 20250806, end: 20250806
  2. ALBUTEROL SULFATE [Concomitant]
     Active Substance: ALBUTEROL SULFATE
  3. BETIMOL [Concomitant]
     Active Substance: TIMOLOL
  4. VIAGRA [Concomitant]
     Active Substance: SILDENAFIL CITRATE
  5. Psyllium seed, aspartame [Concomitant]
  6. ZETIA [Concomitant]
     Active Substance: EZETIMIBE
  7. ARICEPT [Concomitant]
     Active Substance: DONEPEZIL HYDROCHLORIDE
  8. CYANOCOBALAMIN [Concomitant]
     Active Substance: CYANOCOBALAMIN
  9. COENZYME Q10 [Concomitant]
     Active Substance: DIETARY SUPPLEMENT\UBIDECARENONE
  10. CHOLECALCIFEROL [Concomitant]
     Active Substance: CHOLECALCIFEROL
  11. LIPITOR [Concomitant]
     Active Substance: ATORVASTATIN CALCIUM
  12. ASPIRIN [Concomitant]
     Active Substance: ASPIRIN

REACTIONS (10)
  - Cerebrovascular accident [Recovered/Resolved]
  - Aphasia [Recovered/Resolved]
  - Asthenia [Recovered/Resolved]
  - Malaise [Recovered/Resolved]
  - Dysarthria [Recovered/Resolved]
  - Locked-in syndrome [Recovered/Resolved]
  - Hemiparesis [Recovered/Resolved]
  - Paralysis [Recovered/Resolved]
  - Facial paralysis [Recovered/Resolved]
  - Flushing [Recovered/Resolved]

NARRATIVE: CASE EVENT DATE: 20250806
